FAERS Safety Report 7464354-4 (Version None)
Quarter: 2011Q2

REPORT INFORMATION
  Report Type: 
  Country: None (occurrence: None)
  Receive Date: 20110509
  Receipt Date: 20110502
  Transmission Date: 20111010
  Serious: Yes (Life-Threatening, Hospitalization)
  Sender: FDA-Public Use
  Company Number: CA-BAYER-2011-024344

PATIENT
  Age: 65 Year
  Sex: Male
  Weight: 62 kg

DRUGS (7)
  1. METOPROLOL SUCCINATE [Concomitant]
     Indication: VARICOSE VEIN
     Dosage: 12.5 MG, BID
  2. PREDNISONE [Concomitant]
     Indication: THROMBOCYTOPENIA
     Dosage: 30 MG, UNK
  3. SANDOSTATIN LAR [Concomitant]
     Indication: HEPATIC NEOPLASM MALIGNANT
     Dosage: 30 MG, UNK
     Route: 030
  4. ATROVENT [Concomitant]
  5. NEXAVAR [Suspect]
     Indication: HEPATIC NEOPLASM MALIGNANT
     Dosage: 400 MG, BID
     Route: 048
     Dates: start: 20101015, end: 20101128
  6. PANTOLOC [Concomitant]
     Indication: GASTROOESOPHAGEAL REFLUX DISEASE
     Dosage: 40 MG, UNK
  7. TOLBUTAMIDE [Concomitant]
     Indication: DIABETES MELLITUS
     Dosage: 500 MG, TID

REACTIONS (1)
  - PULMONARY TUBERCULOSIS [None]
